FAERS Safety Report 14344655 (Version 5)
Quarter: 2018Q1

REPORT INFORMATION
  Report Type: Spontaneous
  Country: AU (occurrence: AU)
  Receive Date: 20180103
  Receipt Date: 20180116
  Transmission Date: 20180509
  Serious: Yes (Death)
  Sender: FDA-Public Use
  Company Number: AU-ABBVIE-18K-008-2209787-00

PATIENT
  Sex: Female

DRUGS (3)
  1. DUODOPA [Suspect]
     Active Substance: CARBIDOPA\LEVODOPA
     Route: 050
  2. DUODOPA [Suspect]
     Active Substance: CARBIDOPA\LEVODOPA
     Dosage: DUODOPA NIGHT: MD 0ML, CD 2.3MLS, ED 0.0MLS, 9PM-6AM
     Route: 050
     Dates: start: 201606
  3. DUODOPA [Suspect]
     Active Substance: CARBIDOPA\LEVODOPA
     Indication: PARKINSON^S DISEASE
     Dosage: DUODOPA DAY: MD 4.0MLS, CD 3.5MLS. ED 1.0MLS, 6AM-9PM
     Route: 050
     Dates: start: 201309

REACTIONS (2)
  - Device occlusion [Not Recovered/Not Resolved]
  - Cardiac arrest [Fatal]
